FAERS Safety Report 18294706 (Version 2)
Quarter: 2021Q1

REPORT INFORMATION
  Report Type: Spontaneous
  Country: US (occurrence: US)
  Receive Date: 20200922
  Receipt Date: 20210317
  Transmission Date: 20210419
  Serious: No
  Sender: FDA-Public Use
  Company Number: US-GLOBAL BLOOD THERAPEUTICS INC-US-GBT-20-01414

PATIENT
  Age: 28 Year
  Sex: Male

DRUGS (4)
  1. ENDARI [Concomitant]
     Active Substance: GLUTAMINE
     Indication: PRODUCT USED FOR UNKNOWN INDICATION
  2. FOLIC ACID. [Concomitant]
     Active Substance: FOLIC ACID
     Indication: PRODUCT USED FOR UNKNOWN INDICATION
  3. OXBRYTA [Suspect]
     Active Substance: VOXELOTOR
     Indication: SICKLE CELL DISEASE
     Route: 048
     Dates: start: 20200508, end: 2020
  4. OXBRYTA [Suspect]
     Active Substance: VOXELOTOR
     Route: 048
     Dates: start: 2020, end: 20210107

REACTIONS (4)
  - Headache [Recovering/Resolving]
  - Bone pain [Unknown]
  - Rash [Unknown]
  - Therapy cessation [Unknown]

NARRATIVE: CASE EVENT DATE: 20200508
